FAERS Safety Report 7434941-8 (Version None)
Quarter: 2011Q2

REPORT INFORMATION
  Report Type: 
  Country: None (occurrence: None)
  Receive Date: 20110425
  Receipt Date: 20110414
  Transmission Date: 20111010
  Serious: Yes (Death, Hospitalization)
  Sender: FDA-Public Use
  Company Number: US-ROCHE-743811

PATIENT
  Age: 62 Year
  Sex: Male
  Weight: 89 kg

DRUGS (10)
  1. COMPAZINE [Concomitant]
  2. FEXOFENADINE [Concomitant]
  3. NASACORT [Concomitant]
  4. TEMOZOLOMIDE [Suspect]
     Indication: GLIOBLASTOMA MULTIFORME
     Dosage: 150-200MG/M2 D1-5, (CYCLE 4 WEEKS), 75 MG/M2 QD(CYCLE 6 WEEKS) LAST DOSE PRIOR TO SAE:28OCT10
     Route: 048
     Dates: start: 20100812
  5. ZOLOFT [Concomitant]
  6. BEVACIZUMAB [Suspect]
     Route: 042
     Dates: start: 20110127
  7. BEVACIZUMAB [Suspect]
     Route: 042
     Dates: start: 20110224
  8. PROVIGIL [Concomitant]
  9. KEPPRA [Concomitant]
  10. BEVACIZUMAB [Suspect]
     Indication: GLIOBLASTOMA MULTIFORME
     Dosage: DF:INFUSTION,OVER 30-90MIN ON D1+15,START OF W2,D1 OF W4+6.LASTDOSE:14OCT10.TREATMENT DELAY
     Route: 042

REACTIONS (2)
  - DEATH [None]
  - DEPRESSION [None]
